FAERS Safety Report 12904739 (Version 1)
Quarter: 2016Q4

REPORT INFORMATION
  Report Type: Spontaneous
  Country: US (occurrence: US)
  Receive Date: 20161102
  Receipt Date: 20161102
  Transmission Date: 20170207
  Serious: No
  Sender: FDA-Public Use
  Company Number: US-GLAXOSMITHKLINE-US2016160843

PATIENT
  Age: 66 Year
  Sex: Female

DRUGS (8)
  1. LORATADINE. [Concomitant]
     Active Substance: LORATADINE
  2. TYLENOL [Concomitant]
     Active Substance: ACETAMINOPHEN
  3. ATENOLOL. [Concomitant]
     Active Substance: ATENOLOL
  4. CHOLECALCIFEROL [Concomitant]
     Active Substance: CHOLECALCIFEROL
  5. SENNOSIDES. [Concomitant]
     Active Substance: SENNOSIDES
  6. ANORO ELLIPTA [Suspect]
     Active Substance: UMECLIDINIUM BROMIDE\VILANTEROL TRIFENATATE
     Indication: CHRONIC OBSTRUCTIVE PULMONARY DISEASE
     Dosage: 1 PUFF(S), QD
     Route: 055
     Dates: start: 20161022
  7. ALEVE [Concomitant]
     Active Substance: NAPROXEN SODIUM
  8. ANORO ELLIPTA [Suspect]
     Active Substance: UMECLIDINIUM BROMIDE\VILANTEROL TRIFENATATE
     Indication: EMPHYSEMA

REACTIONS (3)
  - Constipation [Not Recovered/Not Resolved]
  - Device use error [Recovered/Resolved]
  - Underdose [Recovered/Resolved]

NARRATIVE: CASE EVENT DATE: 201610
